FAERS Safety Report 7110222-7 (Version None)
Quarter: 2010Q4

REPORT INFORMATION
  Report Type: 
  Country: None (occurrence: None)
  Receive Date: 20101112
  Receipt Date: 20101027
  Transmission Date: 20110411
  Serious: Yes (Hospitalization)
  Sender: FDA-Public Use
  Company Number: 1-18148287

PATIENT
  Age: 79 Year
  Sex: Male
  Weight: 63.5036 kg

DRUGS (22)
  1. QUININE SULFATE [Suspect]
     Indication: MUSCLE SPASMS
     Dosage: AS NEEDED, ORAL
     Route: 048
     Dates: start: 20020202
  2. QUININE SULFATE [Suspect]
     Indication: MUSCLE SPASMS
     Dosage: AS NEEDED, ORAL
     Route: 048
     Dates: start: 20010101, end: 20020101
  3. METOPROLOL [Concomitant]
  4. DIGOXIN [Concomitant]
  5. LIPITOR [Concomitant]
  6. PRILOSEC [Concomitant]
  7. WARFARIN SODIUM [Concomitant]
  8. COZAAR [Concomitant]
  9. TOPROL-XL [Concomitant]
  10. MECLIZINE [Concomitant]
  11. AMBIEN [Concomitant]
  12. IMDUR [Concomitant]
  13. ZOLOFT [Concomitant]
  14. ANDROGEL [Concomitant]
  15. XALATAN [Concomitant]
  16. TIKOSYN [Concomitant]
  17. SAW PALMETTO [Concomitant]
  18. CALCIUM-MAGNESIUM-ZINC [Concomitant]
  19. CURRY POWDER [Concomitant]
  20. LOVAZA [Concomitant]
  21. CHOLINE/INOSITOL [Concomitant]
  22. METAMUCIL-2 [Concomitant]

REACTIONS (3)
  - DRUG HYPERSENSITIVITY [None]
  - IDIOPATHIC THROMBOCYTOPENIC PURPURA [None]
  - PAIN [None]
